FAERS Safety Report 10606729 (Version 3)
Quarter: 2015Q1

REPORT INFORMATION
  Report Type: Spontaneous
  Country: BR (occurrence: BR)
  Receive Date: 20141125
  Receipt Date: 20150206
  Transmission Date: 20150720
  Serious: Yes (Death, Hospitalization, Other)
  Sender: FDA-Public Use
  Company Number: BR-SA-2014SA155331

PATIENT
  Sex: Male

DRUGS (3)
  1. APIDRA [Suspect]
     Active Substance: INSULIN GLULISINE
     Indication: DIABETES MELLITUS
     Route: 058
  2. LANTUS SOLOSTAR [Suspect]
     Active Substance: INSULIN GLARGINE
     Indication: DIABETES MELLITUS
     Dosage: 20-25IU DAILY IN THE MORNING
     Route: 058
  3. SOLOSTAR [Concomitant]
     Active Substance: DEVICE

REACTIONS (10)
  - Hyperglycaemia [Unknown]
  - Renal impairment [Unknown]
  - Procedural complication [Fatal]
  - Dementia Alzheimer^s type [Not Recovered/Not Resolved]
  - Pancreatic carcinoma [Unknown]
  - Hospitalisation [Unknown]
  - Malaise [Unknown]
  - Activities of daily living impaired [Unknown]
  - Pancreatic disorder [Recovered/Resolved]
  - Underweight [Unknown]
